FAERS Safety Report 22270306 (Version 3)
Quarter: 2023Q2

REPORT INFORMATION
  Report Type: Spontaneous
  Country: TW (occurrence: TW)
  Receive Date: 20230501
  Receipt Date: 20230523
  Transmission Date: 20230722
  Serious: Yes (Hospitalization, Other)
  Sender: FDA-Public Use
  Company Number: TW-CHUGAI-2023015298

PATIENT
  Age: 83 Year
  Sex: Female
  Weight: 48 kg

DRUGS (6)
  1. ACTEMRA [Suspect]
     Active Substance: TOCILIZUMAB
     Indication: Rheumatoid arthritis
     Dosage: 280 MILLIGRAM, ONCE/MONTH MOST RECENT DOSE 29/MAR/2023
     Route: 041
     Dates: start: 20220930
  2. PREDNISOLONE [Concomitant]
     Active Substance: PREDNISOLONE
     Indication: Rheumatoid arthritis
     Dosage: 5 MILLIGRAM, QD/PRN
     Route: 048
     Dates: start: 20210428
  3. FOLIC ACID [Concomitant]
     Active Substance: FOLIC ACID
     Indication: Prophylaxis
     Dosage: 5 MILLIGRAM, QD
     Route: 048
     Dates: start: 20211208
  4. CONSLIFE [Concomitant]
     Indication: Prophylaxis
     Dosage: 2 DOSAGE FORM, HS
     Route: 048
     Dates: start: 20220715
  5. COBAMAMIDE [Concomitant]
     Active Substance: COBAMAMIDE
     Indication: Anaemia
     Dosage: 0.5 MILLIGRAM, BID
     Route: 048
     Dates: start: 20200415
  6. PANTOPRAZOLE [Concomitant]
     Active Substance: PANTOPRAZOLE
     Indication: Peptic ulcer
     Dosage: 2VIALS, Q12H
     Route: 042
     Dates: start: 20230315, end: 20230321

REACTIONS (3)
  - Pulmonary embolism [Recovering/Resolving]
  - Enterococcal infection [Unknown]
  - Haemoglobin decreased [Unknown]

NARRATIVE: CASE EVENT DATE: 20230313
